FAERS Safety Report 4542078-0 (Version None)
Quarter: 2004Q4

REPORT INFORMATION
  Report Type: 
  Country: None (occurrence: None)
  Receive Date: 20041230
  Receipt Date: 20041216
  Transmission Date: 20050328
  Serious: Yes (Other)
  Sender: FDA-Public Use
  Company Number: PHNU2004DE04227

PATIENT
  Sex: Female

DRUGS (4)
  1. SANASTHMAX [Suspect]
     Indication: CHRONIC OBSTRUCTIVE AIRWAYS DISEASE
     Dosage: 1 TO 4 DF/WEEK
  2. FORADIL [Suspect]
     Indication: CHRONIC OBSTRUCTIVE AIRWAYS DISEASE
  3. FEMIBION [Concomitant]
     Route: 048
  4. IRON PREPARATIONS [Concomitant]
     Route: 065

REACTIONS (6)
  - ABORTION SPONTANEOUS [None]
  - DRUG EXPOSURE DURING PREGNANCY [None]
  - INTRA-UTERINE DEATH [None]
  - PLACENTAL DISORDER [None]
  - PLACENTAL DYSPLASIA [None]
  - PLACENTAL INSUFFICIENCY [None]
